FAERS Safety Report 4503545-9 (Version None)
Quarter: 2004Q4

REPORT INFORMATION
  Report Type: 
  Country: None (occurrence: None)
  Receive Date: 20041112
  Receipt Date: 20041102
  Transmission Date: 20050328
  Serious: Yes (Other)
  Sender: FDA-Public Use
  Company Number: 200410525BYL

PATIENT
  Age: 62 Year
  Sex: Female
  Weight: 55 kg

DRUGS (4)
  1. ASPIRIN [Suspect]
     Indication: ATRIAL FIBRILLATION
     Dosage: 100 MG, QD, ORAL
     Route: 048
     Dates: start: 20040401, end: 20040911
  2. BLOPRESS [Concomitant]
  3. LASIX [Concomitant]
  4. MUCOSTA [Concomitant]

REACTIONS (1)
  - THROMBOCYTOPENIC PURPURA [None]
